FAERS Safety Report 17110991 (Version 1)
Quarter: 2019Q4

REPORT INFORMATION
  Report Type: Report from Study
  Country: MX (occurrence: MX)
  Receive Date: 20191204
  Receipt Date: 20191204
  Transmission Date: 20200122
  Serious: Yes (Other)
  Sender: FDA-Public Use
  Company Number: NVSC2019MX057622

PATIENT
  Age: 53 Year
  Sex: Male
  Weight: 75 kg

DRUGS (2)
  1. INSULIN [Concomitant]
     Active Substance: INSULIN NOS
     Indication: DIABETES MELLITUS
     Dosage: 10 MG (37 UNITS), QD (AMPOULE)
     Route: 030
     Dates: start: 2011
  2. GALVUS MET [Suspect]
     Active Substance: METFORMIN HYDROCHLORIDE\VILDAGLIPTIN
     Indication: DIABETES MELLITUS
     Dosage: 1 DF (50/850 MG), BID
     Route: 048
     Dates: start: 2014

REACTIONS (3)
  - Visual impairment [Not Recovered/Not Resolved]
  - Retinal tear [Unknown]
  - Intraocular pressure increased [Unknown]

NARRATIVE: CASE EVENT DATE: 201604
